FAERS Safety Report 14012442 (Version 1)
Quarter: 2017Q3

REPORT INFORMATION
  Report Type: Other
  Country: JP (occurrence: JP)
  Receive Date: 20170926
  Receipt Date: 20170926
  Transmission Date: 20171128
  Serious: Yes (Death, Other)
  Sender: FDA-Public Use
  Company Number: JP-ACTELION-A-CH2017-159569

PATIENT
  Age: 4 Month

DRUGS (3)
  1. TRACLEER [Suspect]
     Active Substance: BOSENTAN
     Indication: PULMONARY ARTERIAL HYPERTENSION
     Route: 048
  2. TADALAFIL [Concomitant]
     Active Substance: TADALAFIL
     Indication: PULMONARY ARTERIAL HYPERTENSION
     Route: 065
  3. BERAPROST [Concomitant]
     Active Substance: BERAPROST
     Indication: PULMONARY ARTERIAL HYPERTENSION
     Route: 065

REACTIONS (8)
  - Systemic-pulmonary artery shunt [Unknown]
  - Concomitant disease aggravated [Unknown]
  - Pulmonary congestion [Unknown]
  - Pulmonary vein stenosis [Unknown]
  - Multiple organ dysfunction syndrome [Fatal]
  - Infection [Fatal]
  - Hypoxia [Unknown]
  - Oxygen saturation decreased [Unknown]
